FAERS Safety Report 9860874 (Version 1)
Quarter: 2014Q1

REPORT INFORMATION
  Report Type: Spontaneous
  Country: GB (occurrence: None)
  Receive Date: 20140130
  Receipt Date: 20140130
  Transmission Date: 20141002
  Serious: Yes (Other)
  Sender: FDA-Public Use
  Company Number: 2014-000171

PATIENT
  Age: 54 Year
  Sex: Male

DRUGS (1)
  1. DORYX (DOXYCYCLINE HYCLATE) PROLONGED-RELEASE TABLET, 200MG [Suspect]
     Indication: MALARIA PROPHYLAXIS
     Dosage: UNK UNK UNKNOWN UNKNOWN
     Dates: start: 20140108

REACTIONS (2)
  - Depression [None]
  - Hyperaesthesia [None]
